FAERS Safety Report 20255224 (Version 1)
Quarter: 2021Q4

REPORT INFORMATION
  Report Type: Spontaneous
  Country: CA (occurrence: CA)
  Receive Date: 20211230
  Receipt Date: 20211230
  Transmission Date: 20220304
  Serious: Yes (Death, Other)
  Sender: FDA-Public Use
  Company Number: CA-BAXTER-2021BAX041935

PATIENT
  Age: 30 Year
  Sex: Female

DRUGS (1)
  1. POTASSIUM CHLORIDE [Suspect]
     Active Substance: POTASSIUM CHLORIDE
     Indication: Product used for unknown indication
     Route: 065
     Dates: start: 20211015

REACTIONS (3)
  - Death [Fatal]
  - Blood potassium decreased [Unknown]
  - Product selection error [Unknown]

NARRATIVE: CASE EVENT DATE: 20211015
